FAERS Safety Report 15596418 (Version 1)
Quarter: 2018Q4

REPORT INFORMATION
  Report Type: Spontaneous
  Country: US (occurrence: US)
  Receive Date: 20181107
  Receipt Date: 20181107
  Transmission Date: 20190205
  Serious: No
  Sender: FDA-Public Use
  Company Number: US-ALLERGAN-1840019US

PATIENT
  Sex: Female

DRUGS (1)
  1. TEFLARO [Suspect]
     Active Substance: CEFTAROLINE FOSAMIL
     Indication: MULTIPLE-DRUG RESISTANCE
     Dosage: 600 MG, SINGLE (TWICE A DAY)
     Route: 065

REACTIONS (2)
  - Product contamination physical [Unknown]
  - Wrong technique in product usage process [Unknown]
